FAERS Safety Report 10506263 (Version 1)
Quarter: 2014Q4

REPORT INFORMATION
  Report Type: Spontaneous
  Country: US (occurrence: US)
  Receive Date: 20141009
  Receipt Date: 20141009
  Transmission Date: 20150528
  Serious: Yes (Hospitalization, Other)
  Sender: FDA-Public Use
  Company Number: US-TEVA-486711USA

PATIENT
  Age: 32 Year
  Sex: Female

DRUGS (1)
  1. SPRINTEC [Suspect]
     Active Substance: ETHINYL ESTRADIOL\NORGESTIMATE
     Dosage: 0.18 MG/0.035 MG
     Route: 048

REACTIONS (7)
  - Pulmonary embolism [Unknown]
  - Nausea [Unknown]
  - Chest discomfort [Unknown]
  - Contact lens intolerance [Unknown]
  - Dyspnoea [Unknown]
  - Adverse event [Unknown]
  - Impaired work ability [Unknown]

NARRATIVE: CASE EVENT DATE: 20140422
